FAERS Safety Report 11571887 (Version 4)
Quarter: 2015Q4

REPORT INFORMATION
  Report Type: Spontaneous
  Country: US (occurrence: US)
  Receive Date: 20150916
  Receipt Date: 20151120
  Transmission Date: 20160304
  Serious: No
  Sender: FDA-Public Use
  Company Number: US-ELI_LILLY_AND_COMPANY-US200909006859

PATIENT
  Age: 62 Year
  Sex: Female

DRUGS (3)
  1. FORTEO [Suspect]
     Active Substance: TERIPARATIDE
     Indication: OSTEOPOROSIS
     Dosage: UNK, UNKNOWN
     Route: 065
  2. RESTASIS [Concomitant]
     Active Substance: CYCLOSPORINE
  3. FORTEO [Suspect]
     Active Substance: TERIPARATIDE
     Dosage: UNK, UNKNOWN
     Route: 065

REACTIONS (14)
  - Influenza like illness [Unknown]
  - Crying [Unknown]
  - Vision blurred [Unknown]
  - Abdominal discomfort [Unknown]
  - Weight increased [Unknown]
  - Nervous system disorder [Unknown]
  - Injection site pain [Recovering/Resolving]
  - Headache [Unknown]
  - Malaise [Not Recovered/Not Resolved]
  - Injection site pruritus [Not Recovered/Not Resolved]
  - Hunger [Unknown]
  - Anxiety [Unknown]
  - Bronchitis [Not Recovered/Not Resolved]
  - Injection site erythema [Not Recovered/Not Resolved]
